FAERS Safety Report 7877500-5 (Version None)
Quarter: 2011Q4

REPORT INFORMATION
  Report Type: 
  Country: None (occurrence: None)
  Receive Date: 20111031
  Receipt Date: 20111006
  Transmission Date: 20120403
  Serious: No
  Sender: FDA-Public Use
  Company Number: US-ELI_LILLY_AND_COMPANY-US201110002583

PATIENT
  Sex: Female

DRUGS (3)
  1. LEVEMIR [Concomitant]
     Indication: DIABETES MELLITUS
     Dosage: 50 UNK, UNK
     Route: 058
     Dates: start: 20090101
  2. NOVOLOG [Concomitant]
     Indication: DIABETES MELLITUS
     Dosage: 90 MG, QD
     Route: 058
     Dates: start: 20090101
  3. STRATTERA [Suspect]
     Dosage: 80 MG, UNK
     Dates: start: 20110901, end: 20111002

REACTIONS (4)
  - HUNGER [None]
  - BLOOD GLUCOSE INCREASED [None]
  - FATIGUE [None]
  - NAUSEA [None]
